FAERS Safety Report 21106223 (Version 1)
Quarter: 2022Q3

REPORT INFORMATION
  Report Type: Spontaneous
  Country: US (occurrence: None)
  Receive Date: 20220719
  Receipt Date: 20220719
  Transmission Date: 20221027
  Serious: Yes (Other)
  Sender: FDA-Public Use
  Company Number: None

PATIENT
  Age: 71 Year
  Sex: Female

DRUGS (1)
  1. VERZENIO [Suspect]
     Active Substance: ABEMACICLIB
     Indication: Colon cancer
     Dosage: 150MG DAILY ORALLY
     Route: 048
     Dates: start: 20220708

REACTIONS (2)
  - Cerebrovascular accident [None]
  - Anaemia [None]

NARRATIVE: CASE EVENT DATE: 20220719
